FAERS Safety Report 25478867 (Version 1)
Quarter: 2025Q2

REPORT INFORMATION
  Report Type: Spontaneous
  Country: US (occurrence: None)
  Receive Date: 20250624
  Receipt Date: 20250624
  Transmission Date: 20250716
  Serious: Yes (Hospitalization)
  Sender: FDA-CTU
  Company Number: None

PATIENT
  Age: 41 Year
  Sex: Female
  Weight: 61 kg

DRUGS (3)
  1. BACTRIM DS [Suspect]
     Active Substance: SULFAMETHOXAZOLE\TRIMETHOPRIM
  2. METRONIDAZOLE [Suspect]
     Active Substance: METRONIDAZOLE
  3. VALACYCLOVIR [Suspect]
     Active Substance: VALACYCLOVIR HYDROCHLORIDE

REACTIONS (7)
  - Diarrhoea [None]
  - Abdominal pain [None]
  - Hypophagia [None]
  - Pyrexia [None]
  - Decreased appetite [None]
  - Drug intolerance [None]
  - Drug hypersensitivity [None]

NARRATIVE: CASE EVENT DATE: 20250613
